FAERS Safety Report 5411469-8 (Version None)
Quarter: 2007Q3

REPORT INFORMATION
  Report Type: 
  Country: None (occurrence: None)
  Receive Date: 20070810
  Receipt Date: 20070731
  Transmission Date: 20080115
  Serious: Yes (Hospitalization)
  Sender: FDA-Public Use
  Company Number: JP-PFIZER INC-2007063982

PATIENT
  Age: 66 Year
  Sex: Male

DRUGS (4)
  1. MIGLITOL TABLET [Suspect]
     Indication: DIABETES MELLITUS
     Dosage: DAILY DOSE:150MG
     Route: 048
     Dates: start: 20070101, end: 20070622
  2. VALSARTAN [Concomitant]
     Route: 048
  3. LANSOPRAZOLE [Concomitant]
  4. LENDORMIN [Concomitant]

REACTIONS (1)
  - LIVER DISORDER [None]
